FAERS Safety Report 21024039 (Version 6)
Quarter: 2022Q4

REPORT INFORMATION
  Report Type: Report from Study
  Country: AU (occurrence: AU)
  Receive Date: 20220629
  Receipt Date: 20221208
  Transmission Date: 20230112
  Serious: Yes (Life-Threatening, Hospitalization, Other)
  Sender: FDA-Public Use
  Company Number: AU-NOVARTISPH-NVSC2022AU142878

PATIENT
  Sex: Male

DRUGS (1)
  1. KESIMPTA [Suspect]
     Active Substance: OFATUMUMAB
     Indication: Relapsing-remitting multiple sclerosis
     Dosage: 20 MG, QMO
     Route: 058
     Dates: start: 20211206

REACTIONS (6)
  - Near death experience [Unknown]
  - COVID-19 [Unknown]
  - Sepsis [Unknown]
  - Pyrexia [Unknown]
  - Bronchitis [Unknown]
  - Abscess intestinal [Unknown]

NARRATIVE: CASE EVENT DATE: 20220101
